FAERS Safety Report 13689277 (Version 1)
Quarter: 2017Q2

REPORT INFORMATION
  Report Type: Spontaneous
  Country: US (occurrence: US)
  Receive Date: 20170626
  Receipt Date: 20170626
  Transmission Date: 20170830
  Serious: No
  Sender: FDA-Public Use
  Company Number: US-MYLANLABS-2016M1056040

PATIENT
  Sex: Female

DRUGS (2)
  1. CYCLOBENZAPRINE HYDROCHLORIDE TABLETS, USP [Suspect]
     Active Substance: CYCLOBENZAPRINE
     Indication: MUSCLE SPASMS
     Dosage: 5 MG, TID, PRN
     Route: 048
     Dates: start: 2015, end: 201612
  2. CYCLOBENZAPRINE HYDROCHLORIDE TABLETS, USP [Suspect]
     Active Substance: CYCLOBENZAPRINE
     Indication: BACK PAIN

REACTIONS (3)
  - Expired product administered [Recovered/Resolved]
  - Hypersomnia [Recovered/Resolved]
  - Incoherent [Recovered/Resolved]

NARRATIVE: CASE EVENT DATE: 2015
